FAERS Safety Report 8273080-3 (Version None)
Quarter: 2012Q2

REPORT INFORMATION
  Report Type: 
  Country: None (occurrence: None)
  Receive Date: 20120411
  Receipt Date: 20120405
  Transmission Date: 20120825
  Serious: No
  Sender: FDA-Public Use
  Company Number: US-PFIZER INC-2012045593

PATIENT
  Sex: Female

DRUGS (1)
  1. SUTENT [Suspect]
     Indication: METASTATIC RENAL CELL CARCINOMA
     Dosage: 50 MG, 1X/DAY,CYCLIC 4WEEKS ON AND 2 OFF
     Dates: start: 20120131

REACTIONS (10)
  - BLOOD COUNT ABNORMAL [None]
  - ARTHRALGIA [None]
  - FALL [None]
  - BLOOD PRESSURE INCREASED [None]
  - FATIGUE [None]
  - CONSTIPATION [None]
  - PALMAR-PLANTAR ERYTHRODYSAESTHESIA SYNDROME [None]
  - PAIN IN EXTREMITY [None]
  - DYSGEUSIA [None]
  - ORAL PAIN [None]
